FAERS Safety Report 6431551-6 (Version None)
Quarter: 2009Q4

REPORT INFORMATION
  Report Type: 
  Country: None (occurrence: None)
  Receive Date: 20091106
  Receipt Date: 20091026
  Transmission Date: 20100525
  Serious: Yes (Hospitalization)
  Sender: FDA-Public Use
  Company Number: TR-ELI_LILLY_AND_COMPANY-TR200910001718

PATIENT
  Sex: Female

DRUGS (12)
  1. HUMALOG [Suspect]
     Indication: DIABETES MELLITUS
     Dosage: 28 IU TOTAL DAILY DOSE - 8U MORNING AND NOON, 12 U EVENING
     Route: 058
     Dates: start: 20060101
  2. LANTUS [Concomitant]
     Indication: DIABETES MELLITUS
     Dosage: 45 U, EACH MORNING
     Route: 058
  3. RAMIPRIL [Concomitant]
     Dosage: UNK UNK, DAILY (1/D)
     Route: 048
  4. MICARDIS [Concomitant]
     Dosage: UNK UNK, DAILY (1/D)
     Route: 048
  5. NORVASC [Concomitant]
     Dosage: UNK UNK, DAILY (1/D)
     Route: 048
  6. LIPOFEN [Concomitant]
     Dosage: UNK UNK, DAILY (1/D)
     Route: 048
  7. CRESTOR [Concomitant]
     Dosage: UNK UNK, DAILY (1/D)
     Route: 048
  8. KETOSTERIL [Concomitant]
     Dosage: UNK UNK, DAILY (1/D)
     Route: 048
  9. LANSOR [Concomitant]
     Dosage: UNK UNK, DAILY (1/D)
     Route: 048
  10. DISPRIL                            /00002701/ [Concomitant]
     Dosage: UNK UNK, DAILY (1/D)
     Route: 048
  11. PLAVIX [Concomitant]
     Dosage: UNK UNK, DAILY (1/D)
     Route: 048
  12. NEBIVOLOL [Concomitant]
     Dosage: UNK UNK, DAILY (1/D)
     Route: 048

REACTIONS (2)
  - ARTERIOSCLEROSIS [None]
  - PERIPHERAL VASCULAR DISORDER [None]
